FAERS Safety Report 14680408 (Version 2)
Quarter: 2018Q2

REPORT INFORMATION
  Report Type: Spontaneous
  Country: US (occurrence: US)
  Receive Date: 20180326
  Receipt Date: 20180504
  Transmission Date: 20180711
  Serious: Yes (Hospitalization)
  Sender: FDA-Public Use
  Company Number: US-NEUROCRINE BIOSCIENCES INC.-2018NBI00816

PATIENT
  Sex: Male

DRUGS (3)
  1. COGENTIN [Concomitant]
     Active Substance: BENZTROPINE MESYLATE
     Indication: GAIT DISTURBANCE
  2. OLANZAPINE. [Concomitant]
     Active Substance: OLANZAPINE
     Indication: SCHIZOPHRENIA
     Route: 048
  3. INGREZZA [Suspect]
     Active Substance: VALBENAZINE
     Indication: TARDIVE DYSKINESIA
     Route: 048

REACTIONS (2)
  - Dysstasia [Recovered/Resolved]
  - Gait disturbance [Recovered/Resolved]
